FAERS Safety Report 10082268 (Version 1)
Quarter: 2014Q2

REPORT INFORMATION
  Report Type: Spontaneous
  Country: US (occurrence: None)
  Receive Date: 20140414
  Receipt Date: 20140414
  Transmission Date: 20141212
  Serious: Yes (Life-Threatening)
  Sender: FDA-Public Use
  Company Number: None

PATIENT
  Age: 41 Year
  Sex: Male
  Weight: 205.03 kg

DRUGS (2)
  1. IRBESARTAN [Suspect]
     Indication: BLOOD PRESSURE
     Route: 048
     Dates: start: 20130828, end: 20140407
  2. ATORVASTATIN [Suspect]
     Indication: BLOOD CHOLESTEROL INCREASED
     Route: 048
     Dates: start: 20130828, end: 20140407

REACTIONS (9)
  - Viral infection [None]
  - Impaired work ability [None]
  - Back pain [None]
  - Nausea [None]
  - Vomiting [None]
  - Pyrexia [None]
  - White blood cell count increased [None]
  - Urine flow decreased [None]
  - Chromaturia [None]
